FAERS Safety Report 9807311 (Version 1)
Quarter: 2014Q1

REPORT INFORMATION
  Report Type: Report from Study
  Country: US (occurrence: US)
  Receive Date: 20140110
  Receipt Date: 20140110
  Transmission Date: 20141002
  Serious: Yes (Other)
  Sender: FDA-Public Use
  Company Number: US-ROCHE-1314957

PATIENT
  Sex: Female

DRUGS (8)
  1. LUCENTIS [Suspect]
     Indication: AGE-RELATED MACULAR DEGENERATION
     Dosage: INJECTION OF LUCENTIS 0.5 MG/0.05 ML GIVEN
     Route: 050
     Dates: start: 20121211
  2. LUCENTIS [Suspect]
     Indication: AGE-RELATED MACULAR DEGENERATION
  3. AVASTIN [Suspect]
     Indication: AGE-RELATED MACULAR DEGENERATION
     Route: 065
  4. TIMOLOL [Concomitant]
     Dosage: OS
     Route: 031
  5. TRAVATAN Z [Concomitant]
     Dosage: EVERY EVENING OS
     Route: 031
  6. BRIMONIDINE [Concomitant]
     Dosage: OS
     Route: 031
  7. ASA [Concomitant]
     Route: 065
  8. SIMVASTATIN [Concomitant]

REACTIONS (9)
  - Macular oedema [Unknown]
  - Off label use [Unknown]
  - Vision blurred [Unknown]
  - Vitreous detachment [Unknown]
  - Myalgia [Unknown]
  - Macular degeneration [Unknown]
  - Macular degeneration [Unknown]
  - Retinal scar [Unknown]
  - Retinal disorder [Unknown]
